FAERS Safety Report 8942261 (Version 1)
Quarter: 2012Q4

REPORT INFORMATION
  Report Type: Spontaneous
  Country: US (occurrence: None)
  Receive Date: 20121129
  Receipt Date: 20121129
  Transmission Date: 20130627
  Serious: Yes (Hospitalization)
  Sender: FDA-Public Use
  Company Number: None

PATIENT
  Sex: Male
  Weight: 13.62 kg

DRUGS (2)
  1. METHOTREXATE [Suspect]
  2. VINCRISTINE SULFATE [Suspect]

REACTIONS (10)
  - Capillary nail refill test abnormal [None]
  - Neutropenia [None]
  - Hypotension [None]
  - Decreased activity [None]
  - Parainfluenzae virus infection [None]
  - Cough [None]
  - Bacteraemia [None]
  - Tachycardia [None]
  - Breath sounds abnormal [None]
  - Pyrexia [None]
